FAERS Safety Report 16641582 (Version 1)
Quarter: 2019Q3

REPORT INFORMATION
  Report Type: Spontaneous
  Country: US (occurrence: US)
  Receive Date: 20190729
  Receipt Date: 20190729
  Transmission Date: 20191004
  Serious: No
  Sender: FDA-Public Use
  Company Number: US-GLENMARK PHARMACEUTICALS-2019GMK041365

PATIENT

DRUGS (2)
  1. MUPIROCIN OINTMENT USP, 2% [Suspect]
     Active Substance: MUPIROCIN
     Indication: STAPHYLOCOCCAL INFECTION
     Dosage: UNK, BID
     Route: 045
     Dates: start: 20190516, end: 20190518
  2. MUPIROCIN OINTMENT USP, 2% [Suspect]
     Active Substance: MUPIROCIN
     Indication: PREOPERATIVE CARE

REACTIONS (4)
  - Nasal mucosal disorder [Not Recovered/Not Resolved]
  - Nasal discomfort [Recovered/Resolved]
  - Product use in unapproved indication [None]
  - Incorrect route of product administration [Unknown]

NARRATIVE: CASE EVENT DATE: 20190516
